FAERS Safety Report 16851270 (Version 1)
Quarter: 2019Q3

REPORT INFORMATION
  Report Type: Report from Study
  Country: US (occurrence: US)
  Receive Date: 20190925
  Receipt Date: 20190925
  Transmission Date: 20191005
  Serious: Yes (Other)
  Sender: FDA-Public Use
  Company Number: US-GILEAD-2019-0429984

PATIENT
  Age: 54 Year
  Sex: Male

DRUGS (3)
  1. BLOOD CELLS, PACKED HUMAN [Concomitant]
     Active Substance: HUMAN RED BLOOD CELL
  2. AMBRISENTAN [Suspect]
     Active Substance: AMBRISENTAN
     Indication: PULMONARY HYPERTENSION
     Dosage: 10 MG, QD
     Route: 048
     Dates: start: 20180817
  3. WARFARIN [Concomitant]
     Active Substance: WARFARIN

REACTIONS (3)
  - Haemoglobin decreased [Unknown]
  - Blood pressure decreased [Unknown]
  - Syncope [Recovered/Resolved]
